FAERS Safety Report 6423508-6 (Version None)
Quarter: 2009Q4

REPORT INFORMATION
  Report Type: 
  Country: None (occurrence: None)
  Receive Date: 20091030
  Receipt Date: 20091030
  Transmission Date: 20100525
  Serious: Yes (Other)
  Sender: FDA-Public Use
  Company Number: None

PATIENT
  Sex: Female

DRUGS (3)
  1. LEVETIRACETAM [Suspect]
     Indication: CONVULSION
     Dosage: ALL OF 2009
  2. ZONISAMIDE [Suspect]
  3. LAMOTRIGINE [Suspect]

REACTIONS (1)
  - CONVULSION [None]
